FAERS Safety Report 6520741-X (Version None)
Quarter: 2009Q4

REPORT INFORMATION
  Report Type: 
  Country: None (occurrence: None)
  Receive Date: 20091229
  Receipt Date: 20091224
  Transmission Date: 20100525
  Serious: Yes (Other)
  Sender: FDA-Public Use
  Company Number: GXKR2009AU13729

PATIENT
  Sex: Male

DRUGS (2)
  1. DOXYHEXAL (NGX) [Suspect]
     Route: 048
  2. LEVOTHYROXINE SODIUM [Concomitant]
     Dosage: 50 UG, UNK

REACTIONS (6)
  - ARTHRALGIA [None]
  - ARTHROSCOPY [None]
  - ASPIRATION BIOPSY [None]
  - ERYTHEMA [None]
  - HAEMARTHROSIS [None]
  - JOINT SWELLING [None]
